FAERS Safety Report 19675707 (Version 2)
Quarter: 2021Q3

REPORT INFORMATION
  Report Type: Spontaneous
  Country: US (occurrence: US)
  Receive Date: 20210809
  Receipt Date: 20210910
  Transmission Date: 20211014
  Serious: Yes (Hospitalization)
  Sender: FDA-Public Use
  Company Number: US-UCBSA-2021027738

PATIENT
  Age: 26 Year
  Sex: Female
  Weight: 72.5 kg

DRUGS (2)
  1. CIMZIA [Suspect]
     Active Substance: CERTOLIZUMAB PEGOL
     Indication: RHEUMATOID ARTHRITIS
     Dosage: 200 MILLIGRAM, EV 2 WEEKS(QOW)
     Route: 058
     Dates: start: 202101, end: 2021
  2. CIMZIA [Suspect]
     Active Substance: CERTOLIZUMAB PEGOL
     Dosage: 200 MILLIGRAM, EV 2 WEEKS(QOW)
     Route: 058
     Dates: start: 202101, end: 2021

REACTIONS (4)
  - Hospitalisation [Unknown]
  - Maternal exposure during pregnancy [Unknown]
  - Fungal infection [Unknown]
  - COVID-19 immunisation [Unknown]

NARRATIVE: CASE EVENT DATE: 202101
